FAERS Safety Report 24395054 (Version 1)
Quarter: 2024Q4

REPORT INFORMATION
  Report Type: Spontaneous
  Country: US (occurrence: US)
  Receive Date: 20241004
  Receipt Date: 20241004
  Transmission Date: 20250115
  Serious: No
  Sender: PADAGIS
  Company Number: PAD-US-2024-1323

PATIENT

DRUGS (1)
  1. DEXAMETHASONE\TOBRAMYCIN [Suspect]
     Active Substance: DEXAMETHASONE\TOBRAMYCIN
     Indication: Product used for unknown indication
     Dosage: 3 TIMES PER DAY FOR 5 DAYS
     Route: 047
     Dates: end: 20240919

REACTIONS (3)
  - Hypersensitivity [Unknown]
  - Erythema [Unknown]
  - Inappropriate schedule of product administration [Unknown]

NARRATIVE: CASE EVENT DATE: 20240918
